FAERS Safety Report 6856654-3 (Version None)
Quarter: 2010Q3

REPORT INFORMATION
  Report Type: 
  Country: None (occurrence: None)
  Receive Date: 20100716
  Receipt Date: 20100716
  Transmission Date: 20110219
  Serious: Yes (Disabling)
  Sender: FDA-Public Use
  Company Number: None

PATIENT
  Age: 40 Year
  Sex: Male
  Weight: 114.76 kg

DRUGS (12)
  1. AVONEX [Suspect]
     Indication: MULTIPLE SCLEROSIS
     Dosage: WEEKLY INTRAMUSC
     Route: 030
     Dates: start: 20091118
  2. PREDNISONE [Concomitant]
  3. BENADRYL [Concomitant]
  4. ALEVE (CAPLET) [Concomitant]
  5. TYLENOL [Concomitant]
  6. VITAMIN E [Concomitant]
  7. VITAMIN B COMPLEX CAP [Concomitant]
  8. VITAMIN C [Concomitant]
  9. VITAMIN D [Concomitant]
  10. LYRICA [Concomitant]
  11. RILUZOLE [Concomitant]
  12. SAM-E [Concomitant]

REACTIONS (9)
  - ANXIETY [None]
  - DEPRESSION [None]
  - DRUG INEFFECTIVE [None]
  - ERYTHEMA [None]
  - FATIGUE [None]
  - INJECTION SITE STREAKING [None]
  - PAIN [None]
  - PRURITUS [None]
  - URTICARIA [None]
